FAERS Safety Report 8618778-X (Version None)
Quarter: 2012Q3

REPORT INFORMATION
  Report Type: 
  Country: None (occurrence: None)
  Receive Date: 20120810
  Receipt Date: 20120810
  Transmission Date: 20120928
  Serious: Yes (Hospitalization)
  Sender: FDA-Public Use
  Company Number: None

PATIENT
  Sex: Male

DRUGS (1)
  1. COPAXONE [Suspect]
     Indication: MULTIPLE SCLEROSIS
     Dosage: 20 MG, DAILY, SUB-Q

REACTIONS (4)
  - DYSPNOEA [None]
  - CHEST PAIN [None]
  - BACK PAIN [None]
  - HEART RATE IRREGULAR [None]
